FAERS Safety Report 6642016-0 (Version None)
Quarter: 2010Q1

REPORT INFORMATION
  Report Type: 
  Country: None (occurrence: None)
  Receive Date: 20100319
  Receipt Date: 20100216
  Transmission Date: 20100710
  Serious: No
  Sender: FDA-Public Use
  Company Number: US-BAYER-201012155BCC

PATIENT
  Sex: Male
  Weight: 79 kg

DRUGS (11)
  1. ALEVE [Suspect]
     Indication: ARTHRITIS
     Dosage: TOTAL DAILY DOSE: 440 MG  UNIT DOSE: 220 MG
     Route: 048
  2. DILTIAZEM HCL [Concomitant]
     Route: 065
  3. FOLIC ACID [Concomitant]
     Route: 065
  4. NEXIUM [Concomitant]
     Route: 065
  5. DETROL LA [Concomitant]
     Route: 065
  6. MULTI-VITAMIN [Concomitant]
     Route: 065
  7. GLUCOSAMINE [Concomitant]
     Route: 065
  8. RUTAN [Concomitant]
     Route: 065
  9. VITAMIN C [Concomitant]
     Route: 065
  10. ALFALFA [Concomitant]
     Route: 065
  11. ZINC [Concomitant]
     Route: 065

REACTIONS (2)
  - ABDOMINAL PAIN UPPER [None]
  - FLATULENCE [None]
